FAERS Safety Report 5903098-4 (Version None)
Quarter: 2008Q3

REPORT INFORMATION
  Report Type: 
  Country: None (occurrence: None)
  Receive Date: 20080930
  Receipt Date: 20080926
  Transmission Date: 20090109
  Serious: Yes (Death, Life-Threatening)
  Sender: FDA-Public Use
  Company Number: JP-EISAI MEDICAL RESEARCH-E2020-03283-SPO-JP

PATIENT
  Age: 84 Year
  Sex: Male
  Weight: 61 kg

DRUGS (14)
  1. ARICEPT [Suspect]
     Indication: DEMENTIA
     Route: 048
     Dates: start: 20080409, end: 20080422
  2. ARICEPT [Suspect]
     Route: 048
     Dates: start: 20080423, end: 20080619
  3. ARICEPT [Suspect]
     Route: 048
     Dates: start: 20080620, end: 20080804
  4. ARTIST [Concomitant]
     Indication: CARDIAC FAILURE CONGESTIVE
     Route: 048
     Dates: start: 20080318, end: 20080802
  5. RENIVACE [Concomitant]
     Indication: CARDIAC FAILURE CONGESTIVE
     Route: 048
     Dates: start: 20080318, end: 20080811
  6. SPIRIVA (TIOTROPIUM BROMIDE HYDRATE) [Concomitant]
     Route: 048
  7. THEO-DUR [Concomitant]
     Route: 048
  8. MUCODYNE [Concomitant]
     Route: 048
  9. ALDACTONE [Concomitant]
     Indication: CARDIAC FAILURE CONGESTIVE
     Route: 048
     Dates: start: 20080318, end: 20080811
  10. UNKNOWN DRUG (EXPECTORANT) [Concomitant]
  11. LASIX [Concomitant]
     Indication: CARDIAC FAILURE CONGESTIVE
     Route: 048
     Dates: start: 20080318, end: 20080805
  12. DIART [Concomitant]
     Indication: CARDIAC FAILURE CONGESTIVE
     Route: 048
     Dates: start: 20080318, end: 20080805
  13. WARFARIN SODIUM [Concomitant]
     Indication: ATRIAL FIBRILLATION
     Route: 048
     Dates: start: 20080318, end: 20080811
  14. RABEPRAZOLE SODIUM [Concomitant]
     Indication: GASTRIC ULCER
     Route: 048
     Dates: start: 20080318, end: 20080811

REACTIONS (4)
  - ATRIOVENTRICULAR BLOCK COMPLETE [None]
  - PNEUMONIA ASPIRATION [None]
  - RENAL FAILURE ACUTE [None]
  - RESPIRATORY FAILURE [None]
